FAERS Safety Report 5683041-6 (Version None)
Quarter: 2008Q1

REPORT INFORMATION
  Report Type: 
  Country: None (occurrence: None)
  Receive Date: 20080327
  Receipt Date: 20080319
  Transmission Date: 20080703
  Serious: Yes (Other)
  Sender: FDA-Public Use
  Company Number: PHEH2006US01241

PATIENT
  Age: 54 Year
  Sex: Female
  Weight: 58.956 kg

DRUGS (12)
  1. AREDIA [Suspect]
     Indication: METASTASES TO BONE
     Dosage: UNK,UNK
     Route: 042
     Dates: start: 20020101, end: 20021127
  2. ZOMETA [Suspect]
     Indication: METASTASES TO BONE
     Dosage: UNK,UNK
     Route: 042
     Dates: start: 20021223, end: 20060208
  3. VITAMIN CAP [Concomitant]
  4. FEMARA [Concomitant]
     Dosage: 2.5 MG, QD
  5. LASIX [Concomitant]
     Dosage: 40 MG, QD
  6. PRINIVIL [Concomitant]
     Dosage: 20 MG, QD
  7. COUMADIN [Concomitant]
     Dosage: 1 MG, QD
  8. LORTAB [Concomitant]
  9. NAPROXEN [Concomitant]
     Dosage: 500 MG, BID
  10. OXYCONTIN [Concomitant]
     Dosage: 10 MG, PRN
  11. ASPIRIN [Concomitant]
  12. TAMOXIFEN CITRATE [Concomitant]
     Indication: BREAST CANCER
     Dosage: 20 MG, QD

REACTIONS (11)
  - BONE DISORDER [None]
  - FALL [None]
  - FEMUR FRACTURE [None]
  - HIP ARTHROPLASTY [None]
  - ORAL SURGERY [None]
  - OSTEONECROSIS [None]
  - PERIODONTAL DISEASE [None]
  - PERIODONTITIS [None]
  - PRIMARY SEQUESTRUM [None]
  - SINUSITIS [None]
  - TOOTH ABSCESS [None]
